FAERS Safety Report 10030815 (Version 1)
Quarter: 2014Q1

REPORT INFORMATION
  Report Type: Spontaneous
  Country: US (occurrence: US)
  Receive Date: 20140323
  Receipt Date: 20140323
  Transmission Date: 20141002
  Serious: No
  Sender: FDA-Public Use
  Company Number: US-ALLERGAN-1314961US

PATIENT
  Age: 56 Year
  Sex: Female

DRUGS (2)
  1. LATISSE 0.03% [Suspect]
     Indication: GROWTH OF EYELASHES
     Dosage: UNK
     Dates: start: 20130906
  2. RESTASIS [Concomitant]
     Indication: DRY EYE
     Dosage: UNK
     Dates: start: 201301

REACTIONS (1)
  - Application site irritation [Unknown]
